FAERS Safety Report 8552621 (Version 2)
Quarter: 2012Q4

REPORT INFORMATION
  Report Type: Report from Study
  Country: US (occurrence: US)
  Receive Date: 20120508
  Receipt Date: 20120831
  Transmission Date: 20130627
  Serious: Yes (Hospitalization)
  Sender: FDA-Public Use
  Company Number: US-CELGENEUS-163-AB007-12031013

PATIENT
  Age: 62 Year
  Sex: Male
  Weight: 97 kg

DRUGS (69)
  1. ABI-007 [Suspect]
     Indication: PANCREATIC ADENOCARCINOMA METASTATIC
     Dosage: 125 milligram/sq. meter
     Route: 041
     Dates: start: 20111011
  2. ABI-007 [Suspect]
     Dosage: 100 milligram/sq. meter
     Route: 041
     Dates: start: 20120306
  3. ABI-007 [Suspect]
     Dosage: 125 milligram/sq. meter
     Route: 041
     Dates: start: 20111221
  4. GEMCITABINE [Suspect]
     Indication: PANCREATIC ADENOCARCINOMA METASTATIC
     Dosage: 1000 milligram/sq. meter
     Route: 041
     Dates: start: 20111011
  5. GEMCITABINE [Suspect]
     Dosage: 800 milligram/sq. meter
     Route: 041
     Dates: start: 20120306
  6. GEMCITABINE [Suspect]
     Dosage: 1000 milligram/sq. meter
     Route: 041
     Dates: start: 20111221
  7. PREDNISONE [Concomitant]
     Indication: EDEMA OF LOWER EXTREMITIES
     Route: 048
     Dates: start: 20111227
  8. PREDNISONE [Concomitant]
     Dosage: 30 Milligram
     Route: 048
     Dates: start: 20120221
  9. NORMAL SALINE [Concomitant]
     Indication: PROPHYLAXIS AGAINST DEHYDRATION
     Dosage: 1 Liters
     Route: 041
     Dates: start: 20120308, end: 20120308
  10. D5 1/2 NS [Concomitant]
     Indication: PROPHYLAXIS AGAINST DEHYDRATION
     Dosage: 2400 milliliter
     Route: 041
     Dates: end: 20120310
  11. NEBIVOLOL [Concomitant]
     Indication: BLOOD PRESSURE
     Dosage: 10 Milligram
     Route: 048
     Dates: start: 20120308, end: 20120310
  12. MORPHINE [Concomitant]
     Indication: PAIN
     Dosage: 2-4 mg
     Route: 048
     Dates: start: 20120308, end: 20120310
  13. MORPHINE [Concomitant]
     Route: 041
  14. HYDRALAZINE [Concomitant]
     Indication: BLOOD PRESSURE
     Dosage: 40 Milligram
     Route: 065
     Dates: start: 20120308, end: 20120310
  15. PAIN MEDICATION [Concomitant]
     Indication: PAIN
     Route: 041
  16. PRAVASTATIN [Concomitant]
     Indication: TRIGLYCERIDE INCREASED
     Dosage: 81 Milligram
     Route: 048
     Dates: start: 200903
  17. PRAVASTATIN [Concomitant]
     Dosage: 80 Milligram
     Route: 048
     Dates: start: 200905
  18. HCTZ [Concomitant]
     Indication: HYPERTENSION
     Dosage: 25 Milligram
     Route: 048
     Dates: start: 200905
  19. ACIPHEX [Concomitant]
     Indication: GERD
     Dosage: 20 Milligram
     Route: 048
     Dates: start: 200905
  20. BYSTOLIC [Concomitant]
     Indication: HYPERTENSION
     Dosage: 10 Milligram
     Route: 048
     Dates: start: 200905
  21. JALYN [Concomitant]
     Indication: URINE FLOW DECREASED
     Dosage: 0.5/0.4 mg
     Route: 048
     Dates: start: 201007
  22. CENTRUM SILVER [Concomitant]
     Indication: VITAMIN SUPPLEMENTATION
     Dosage: 1 Tablet
     Route: 048
     Dates: start: 200006
  23. VITAMIN C [Concomitant]
     Indication: VITAMIN SUPPLEMENTATION
     Dosage: 500 Milligram
     Route: 048
     Dates: start: 200006
  24. VITAMIN D3 [Concomitant]
     Indication: VITAMIN SUPPLEMENTATION
     Dosage: 1000 Milligram
     Route: 048
     Dates: start: 201005
  25. ZOLPIDEM [Concomitant]
     Indication: INSOMNIA
     Dosage: 10 Milligram
     Route: 048
     Dates: start: 201107
  26. ZOLPIDEM [Concomitant]
     Dosage: 25 Milligram
     Route: 048
     Dates: start: 201107
  27. SKELAXIN [Concomitant]
     Indication: MUSCLE SPASMS
     Dosage: 2400 Milligram
     Route: 048
     Dates: start: 201107
  28. SKELAXIN [Concomitant]
     Indication: MUSCLE STRAIN
  29. SKELAXIN [Concomitant]
     Indication: STIFFNESS
  30. HYDROCODONE [Concomitant]
     Indication: PAIN
     Dosage: 5/325mg
     Route: 048
     Dates: start: 201107
  31. HYDROCODONE [Concomitant]
     Indication: ABDOMINAL PAIN
  32. COMPAZINE [Concomitant]
     Indication: PROPHYLAXIS
     Dosage: 10 Milligram
     Route: 048
     Dates: start: 20111011
  33. EMLA [Concomitant]
     Indication: PROPHYLAXIS
     Dosage: 1 Percent
     Route: 061
     Dates: start: 20111011
  34. ZOFRAN [Concomitant]
     Indication: PROPHYLAXIS
     Route: 048
     Dates: start: 20111011
  35. ZOFRAN [Concomitant]
     Route: 041
  36. ALOXI [Concomitant]
     Indication: CHEMOTHERAPY
     Route: 041
     Dates: start: 20111011
  37. TYLENOL [Concomitant]
     Indication: FEVER
     Route: 048
     Dates: start: 20111011
  38. TYLENOL [Concomitant]
     Indication: PREMEDICATION
     Route: 048
     Dates: start: 20120215, end: 20120215
  39. TYLENOL [Concomitant]
     Route: 041
     Dates: start: 20120319, end: 20120319
  40. GLIPIZIDE [Concomitant]
     Indication: DIABETES
     Dosage: 10 Milligram
     Route: 048
     Dates: start: 20111003
  41. ENSURE [Concomitant]
     Indication: SUPPLEMENTATION THERAPY
     Route: 048
     Dates: start: 20111003
  42. ARANESP [Concomitant]
     Indication: ANEMIA
     Dosage: 500 Microgram
     Route: 058
     Dates: start: 20111115
  43. K-DUR [Concomitant]
     Indication: SUPPLEMENTATION THERAPY
     Dosage: 20 Milliequivalents
     Route: 048
     Dates: start: 20111216
  44. DECADRON [Concomitant]
     Indication: DRUG USE FOR UNKNOWN INDICATION
     Route: 041
     Dates: start: 20120103
  45. MAGNESIUM OXIDE [Concomitant]
     Indication: HYPOMAGNESEMIA
     Dosage: 400 Milligram
     Route: 041
     Dates: start: 20111019, end: 20111027
  46. MAGNESIUM OXIDE [Concomitant]
     Dosage: 800 Milligram
     Route: 041
     Dates: start: 20120124, end: 20120213
  47. MAGNESIUM OXIDE [Concomitant]
     Route: 048
     Dates: start: 20120214
  48. MAGNESIUM OXIDE [Concomitant]
     Dosage: 800 Milligram
     Route: 041
     Dates: start: 20120316
  49. DEMEROL [Concomitant]
     Indication: PAIN
     Route: 048
     Dates: start: 20120328
  50. KLOR-CON [Concomitant]
     Indication: DRUG USE FOR UNKNOWN INDICATION
     Route: 065
  51. FUROSEMIDE [Concomitant]
     Indication: DRUG USE FOR UNKNOWN INDICATION
     Dosage: 40 Milligram
     Route: 065
  52. PERCOCET [Concomitant]
     Indication: DRUG USE FOR UNKNOWN INDICATION
     Dosage: 5/325
     Route: 065
  53. EMEND [Concomitant]
     Indication: PROPHYLAXIS
     Route: 041
     Dates: start: 20111107, end: 20111109
  54. PACKED RED BLOOD CELLS [Concomitant]
     Indication: EPISTAXIS
     Dosage: 2 units
     Route: 041
     Dates: start: 20111207, end: 20111208
  55. PACKED RED BLOOD CELLS [Concomitant]
     Indication: ANEMIA
     Dosage: 2 IU (International Unit)
     Route: 041
     Dates: start: 20111227, end: 20111227
  56. PACKED RED BLOOD CELLS [Concomitant]
     Dosage: 2 IU (International Unit)
     Route: 041
     Dates: start: 20120215, end: 20120215
  57. PACKED RED BLOOD CELLS [Concomitant]
     Dosage: 1 unit
     Route: 041
     Dates: start: 20120309, end: 20120309
  58. PACKED RED BLOOD CELLS [Concomitant]
     Dosage: 2 IU (International Unit)
     Route: 041
     Dates: start: 20120310, end: 20120310
  59. LASIX [Concomitant]
     Indication: EDEMA
     Dosage: 20 Milligram
     Route: 048
     Dates: start: 20111216
  60. LASIX [Concomitant]
     Indication: PROPHYLAXIS
     Route: 048
     Dates: start: 20120124
  61. LASIX [Concomitant]
     Indication: DVT PROPHYLAXIS
     Route: 041
     Dates: start: 20120215, end: 20120215
  62. LASIX [Concomitant]
     Route: 041
     Dates: start: 20120319, end: 20120319
  63. Z-PAK [Concomitant]
     Indication: SINUS CONGESTION
     Route: 048
     Dates: start: 20120131, end: 20120205
  64. Z-PAK [Concomitant]
     Indication: RHINORRHEA
  65. BENADRYL [Concomitant]
     Indication: PREMEDICATION
     Route: 041
     Dates: start: 20120215, end: 20120215
  66. BENADRYL [Concomitant]
     Route: 041
     Dates: start: 20120319, end: 20120319
  67. MAGNESIUM [Concomitant]
     Indication: HYPOMAGNESEMIA
     Route: 041
     Dates: start: 20120316
  68. VANCOMYCIN [Concomitant]
     Indication: FEVER
     Route: 041
     Dates: start: 20111013, end: 20111014
  69. CIPRO [Concomitant]
     Indication: PROPHYLAXIS
     Route: 048
     Dates: start: 20111026, end: 20111108

REACTIONS (3)
  - Haemorrhagic anaemia [Recovered/Resolved]
  - Ileus [Recovered/Resolved]
  - Epistaxis [Recovered/Resolved]
